FAERS Safety Report 20583626 (Version 3)
Quarter: 2022Q2

REPORT INFORMATION
  Report Type: Spontaneous
  Country: JP (occurrence: JP)
  Receive Date: 20220311
  Receipt Date: 20220502
  Transmission Date: 20220721
  Serious: Yes (Hospitalization, Other)
  Sender: FDA-Public Use
  Company Number: JP-MSD-2203JPN000919J

PATIENT
  Age: 65 Year
  Sex: Male
  Weight: 74 kg

DRUGS (5)
  1. MOLNUPIRAVIR [Suspect]
     Active Substance: MOLNUPIRAVIR
     Indication: COVID-19 treatment
     Dosage: 800 MILLIGRAM, BID
     Route: 048
     Dates: start: 20220120, end: 20220121
  2. CORTRIL [Suspect]
     Active Substance: HYDROCORTISONE
     Dosage: UNK
     Route: 065
  3. LEVOTHYROXINE SODIUM [Suspect]
     Active Substance: LEVOTHYROXINE SODIUM
     Dosage: UNK
     Route: 065
  4. VALPROATE SODIUM [Suspect]
     Active Substance: VALPROATE SODIUM
     Dosage: UNK
     Route: 065
  5. TEGRETOL [Suspect]
     Active Substance: CARBAMAZEPINE
     Dosage: UNK
     Route: 065

REACTIONS (4)
  - Adrenal insufficiency [Unknown]
  - Altered state of consciousness [Unknown]
  - Malaise [Unknown]
  - Hyponatraemia [Unknown]

NARRATIVE: CASE EVENT DATE: 20220101
